FAERS Safety Report 6804183-5 (Version None)
Quarter: 2010Q2

REPORT INFORMATION
  Report Type: 
  Country: None (occurrence: None)
  Receive Date: 20100628
  Receipt Date: 20070123
  Transmission Date: 20101027
  Serious: Yes (Death, Hospitalization, Other)
  Sender: FDA-Public Use
  Company Number: US-PFIZER INC-2007006531

PATIENT
  Sex: Male
  Weight: 84.4 kg

DRUGS (9)
  1. SUTENT [Suspect]
     Indication: RENAL CELL CARCINOMA
     Dosage: QD: EVERY DAY
     Dates: start: 20060914
  2. CLONIDINE [Concomitant]
  3. ALL OTHER THERAPEUTIC PRODUCTS [Concomitant]
  4. METOPROLOL [Concomitant]
  5. COREG [Concomitant]
  6. ACTOS [Concomitant]
  7. SYNTHROID [Concomitant]
  8. INSULIN [Concomitant]
  9. OXYCODONE HCL [Concomitant]

REACTIONS (2)
  - HAEMORRHAGIC DIATHESIS [None]
  - THROMBOCYTOPENIA [None]
